FAERS Safety Report 24269894 (Version 1)
Quarter: 2024Q3

REPORT INFORMATION
  Report Type: Spontaneous
  Country: US (occurrence: US)
  Receive Date: 20240830
  Receipt Date: 20240830
  Transmission Date: 20241016
  Serious: Yes (Hospitalization)
  Sender: ROCHE
  Company Number: US-BoehringerIngelheim-2024-BI-047027

PATIENT
  Age: 65 Year
  Sex: Male

DRUGS (2)
  1. METALYSE [Suspect]
     Active Substance: TENECTEPLASE
     Indication: Ischaemic stroke
     Dosage: 16 MG TOTAL.
     Route: 042
  2. CLEVIDIPINE [Concomitant]
     Active Substance: CLEVIDIPINE

REACTIONS (1)
  - Angioedema [Recovered/Resolved]
